FAERS Safety Report 5590302-8 (Version None)
Quarter: 2008Q1

REPORT INFORMATION
  Report Type: 
  Country: None (occurrence: None)
  Receive Date: 20080109
  Receipt Date: 20071228
  Transmission Date: 20080703
  Serious: Yes (Other)
  Sender: FDA-Public Use
  Company Number: 2007333815

PATIENT
  Age: 3 Year
  Sex: Female

DRUGS (1)
  1. INFANT'S PEDICARE DECONGESTANT AND COUGH DROPS (PSEUDOEPHEDRINE,  DEXT [Suspect]
     Dosage: 1 DOSE

REACTIONS (2)
  - AGITATION [None]
  - HALLUCINATION, VISUAL [None]
